FAERS Safety Report 18464213 (Version 2)
Quarter: 2021Q1

REPORT INFORMATION
  Report Type: Spontaneous
  Country: US (occurrence: US)
  Receive Date: 20201104
  Receipt Date: 20210203
  Transmission Date: 20210419
  Serious: Yes (Other)
  Sender: FDA-Public Use
  Company Number: US-JNJFOC-20201100127

PATIENT
  Sex: Female

DRUGS (1)
  1. ULTRAM [Suspect]
     Active Substance: TRAMADOL HYDROCHLORIDE
     Indication: PAIN
     Route: 048
     Dates: start: 2010

REACTIONS (4)
  - Spinal operation [Recovered/Resolved]
  - Neck surgery [Recovered/Resolved]
  - Sciatica [Recovered/Resolved]
  - Pancreatic carcinoma [Recovered/Resolved]
